FAERS Safety Report 8964259 (Version 2)
Quarter: 2012Q4

REPORT INFORMATION
  Report Type: Report from Study
  Country: GB (occurrence: GB)
  Receive Date: 20121214
  Receipt Date: 20121214
  Transmission Date: 20130627
  Serious: Yes (Life-Threatening, Hospitalization)
  Sender: FDA-Public Use
  Company Number: GB-ASTRAZENECA-2012SE84675

PATIENT
  Age: 17762 Day
  Sex: Male

DRUGS (7)
  1. AZD6140 [Suspect]
     Indication: ACUTE MYOCARDIAL INFARCTION
     Dosage: BLINDED STUDY
     Route: 048
     Dates: start: 20120911, end: 20121007
  2. AZD6140 [Suspect]
     Indication: ACUTE MYOCARDIAL INFARCTION
     Dosage: OPEN LABEL EXTENSION
     Route: 048
     Dates: start: 20120911, end: 20121106
  3. ASA [Concomitant]
  4. RAMIPRIL [Concomitant]
  5. ATORVASTATIN [Concomitant]
  6. PRASUGREL [Concomitant]
  7. GLYCERYL TRINITRATE [Concomitant]
     Dosage: 400 MCG CFC-FREE SPRAY, 1 PUFF AS NEEDED

REACTIONS (1)
  - Bradyarrhythmia [Recovered/Resolved]
